FAERS Safety Report 9832244 (Version 2)
Quarter: 2014Q1

REPORT INFORMATION
  Report Type: Report from Study
  Country: AR (occurrence: AR)
  Receive Date: 20140121
  Receipt Date: 20140121
  Transmission Date: 20141002
  Serious: Yes (Other)
  Sender: FDA-Public Use
  Company Number: PHHY2013AR117789

PATIENT
  Sex: Male

DRUGS (2)
  1. EXFORGE [Suspect]
     Indication: HYPERTENSION
     Dosage: 1 DF (160/5), DAILY
     Route: 048
     Dates: start: 2012
  2. CARVEDILOL [Concomitant]

REACTIONS (2)
  - Inguinal hernia [Unknown]
  - Epididymitis [Unknown]
